FAERS Safety Report 18674769 (Version 1)
Quarter: 2020Q4

REPORT INFORMATION
  Report Type: Spontaneous
  Country: DK (occurrence: DK)
  Receive Date: 20201228
  Receipt Date: 20201228
  Transmission Date: 20210114
  Serious: Yes (Hospitalization)
  Sender: FDA-Public Use
  Company Number: DK-ABBVIE-20K-044-3707157-00

PATIENT
  Age: 33 Year
  Sex: Male

DRUGS (2)
  1. HUMIRA [Suspect]
     Active Substance: ADALIMUMAB
     Dosage: DOSAGE VARYING (40 MG EVERY THIRD-FOURTH WEEK)
     Route: 058
     Dates: end: 20191023
  2. HUMIRA [Suspect]
     Active Substance: ADALIMUMAB
     Indication: ANKYLOSING SPONDYLITIS
     Dosage: DOSAGE VARYING (40 MG EVERY THIRD-FOURTH WEEK)
     Route: 058
     Dates: start: 2010

REACTIONS (8)
  - Impaired quality of life [Unknown]
  - Panic attack [Unknown]
  - Depressed mood [Unknown]
  - Asthenia [Unknown]
  - Psychiatric symptom [Unknown]
  - Anxiety [Unknown]
  - Depression [Unknown]
  - Inappropriate schedule of product administration [Not Recovered/Not Resolved]

NARRATIVE: CASE EVENT DATE: 2011
